FAERS Safety Report 23873753 (Version 1)
Quarter: 2024Q2

REPORT INFORMATION
  Report Type: Report from Study
  Country: CA (occurrence: CA)
  Receive Date: 20240520
  Receipt Date: 20240520
  Transmission Date: 20240716
  Serious: Yes (Other)
  Sender: FDA-Public Use
  Company Number: CA-SAMSUNG BIOEPIS-SB-2024-14496

PATIENT
  Age: 28 Year
  Sex: Female

DRUGS (1)
  1. RENFLEXIS [Suspect]
     Active Substance: INFLIXIMAB-ABDA
     Indication: Crohn^s disease
     Route: 065
     Dates: start: 202311, end: 202401

REACTIONS (6)
  - Crohn^s disease [Unknown]
  - Suicidal ideation [Unknown]
  - Mental disorder [Unknown]
  - Ill-defined disorder [Unknown]
  - Product substitution issue [Unknown]
  - Off label use [Unknown]
